FAERS Safety Report 13924886 (Version 2)
Quarter: 2017Q4

REPORT INFORMATION
  Report Type: Spontaneous
  Country: US (occurrence: US)
  Receive Date: 20170831
  Receipt Date: 20171026
  Transmission Date: 20180320
  Serious: No
  Sender: FDA-Public Use
  Company Number: US-GLAXOSMITHKLINE-US2017GSK134331

PATIENT
  Age: 65 Year
  Sex: Female

DRUGS (10)
  1. LORAZEPAM. [Concomitant]
     Active Substance: LORAZEPAM
  2. ZETIA [Concomitant]
     Active Substance: EZETIMIBE
  3. INVOKANA [Concomitant]
     Active Substance: CANAGLIFLOZIN
  4. LACTULOSE. [Concomitant]
     Active Substance: LACTULOSE
  5. FARXIGA [Concomitant]
     Active Substance: DAPAGLIFLOZIN PROPANEDIOL
  6. BENAZEPRIL [Concomitant]
     Active Substance: BENAZEPRIL HYDROCHLORIDE
  7. TANZEUM [Suspect]
     Active Substance: ALBIGLUTIDE
     Indication: TYPE 2 DIABETES MELLITUS
     Dosage: 50 MG, UNK
     Route: 042
     Dates: start: 2015
  8. XIFAXAN [Concomitant]
     Active Substance: RIFAXIMIN
  9. NEXIUM [Concomitant]
     Active Substance: ESOMEPRAZOLE MAGNESIUM
  10. HYDROCODONE [Concomitant]
     Active Substance: HYDROCODONE

REACTIONS (9)
  - Product quality issue [Unknown]
  - Injection site papule [Recovered/Resolved]
  - Injection site reaction [Recovered/Resolved]
  - Injection site rash [Recovered/Resolved]
  - Plantar fasciitis [Not Recovered/Not Resolved]
  - Injection site hypersensitivity [Unknown]
  - Injection site erythema [Recovered/Resolved]
  - Injection site pruritus [Unknown]
  - Drug administered in wrong device [Unknown]

NARRATIVE: CASE EVENT DATE: 201706
